FAERS Safety Report 5263735-7 (Version None)
Quarter: 2007Q1

REPORT INFORMATION
  Report Type: 
  Country: None (occurrence: None)
  Receive Date: 20061213
  Receipt Date: 20040519
  Transmission Date: 20070707
  Serious: Yes (Hospitalization)
  Sender: FDA-Public Use
  Company Number: 2004UW10372

PATIENT
  Age: 72 Year
  Sex: Female
  Weight: 56.6996 kg

DRUGS (4)
  1. IRESSA [Suspect]
     Indication: NON-SMALL CELL LUNG CANCER
     Dosage: 250 MG PO
     Route: 048
     Dates: start: 20030801
  2. CLARITIN [Concomitant]
  3. CELEBREX [Concomitant]
  4. MARINOL [Concomitant]

REACTIONS (4)
  - ACNE [None]
  - METASTASES TO CENTRAL NERVOUS SYSTEM [None]
  - METASTASES TO LIVER [None]
  - METASTASES TO LUNG [None]
